FAERS Safety Report 8120402-X (Version None)
Quarter: 2012Q1

REPORT INFORMATION
  Report Type: 
  Country: None (occurrence: None)
  Receive Date: 20120207
  Receipt Date: 20120131
  Transmission Date: 20120608
  Serious: Yes (Hospitalization)
  Sender: FDA-Public Use
  Company Number: FR-GLAXOSMITHKLINE-B0779514A

PATIENT
  Age: 77 Year
  Sex: Female

DRUGS (1)
  1. RYTHMOL [Suspect]
     Indication: EXTRASYSTOLES
     Route: 048

REACTIONS (6)
  - HYPERHIDROSIS [None]
  - MALAISE [None]
  - ABDOMINAL PAIN [None]
  - LOSS OF CONSCIOUSNESS [None]
  - VOMITING [None]
  - GRAND MAL CONVULSION [None]
